FAERS Safety Report 9830221 (Version 2)
Quarter: 2014Q1

REPORT INFORMATION
  Report Type: Spontaneous
  Country: US (occurrence: US)
  Receive Date: 20140120
  Receipt Date: 20140212
  Transmission Date: 20141002
  Serious: Yes (Death, Hospitalization, Other)
  Sender: FDA-Public Use
  Company Number: US-ACTELION-A-US2014-93553

PATIENT
  Age: 43 Year
  Sex: Female

DRUGS (1)
  1. VELETRI [Suspect]
     Indication: PULMONARY HYPERTENSION
     Dosage: 75 NG/KG, PER MIN
     Route: 041
     Dates: start: 20130515

REACTIONS (2)
  - Leukaemia [Fatal]
  - Pulmonary hypertension [Fatal]
